FAERS Safety Report 6502009-0 (Version None)
Quarter: 2009Q4

REPORT INFORMATION
  Report Type: 
  Country: None (occurrence: None)
  Receive Date: 20091216
  Receipt Date: 20091208
  Transmission Date: 20100525
  Serious: Yes (Hospitalization)
  Sender: FDA-Public Use
  Company Number: CA-AMGEN-KDL377621

PATIENT
  Sex: Female
  Weight: 82.6 kg

DRUGS (11)
  1. ENBREL [Suspect]
     Indication: RHEUMATOID ARTHRITIS
     Route: 058
     Dates: start: 20090823, end: 20091115
  2. RAMIPRIL [Concomitant]
     Dates: start: 20080401
  3. EZETROL [Concomitant]
     Route: 048
     Dates: start: 20090701
  4. METHOTREXATE [Concomitant]
     Dates: start: 19980217
  5. FOLIC ACID [Concomitant]
  6. ARTHROTEC [Concomitant]
  7. ELAVIL [Concomitant]
  8. DETROL [Concomitant]
  9. FOSAMAX [Concomitant]
     Route: 048
  10. CALCIUM [Concomitant]
  11. VITAMIN D [Concomitant]

REACTIONS (6)
  - BLOOD GLUCOSE INCREASED [None]
  - DYSPHONIA [None]
  - HAEMOGLOBIN DECREASED [None]
  - INTERSTITIAL LUNG DISEASE [None]
  - MALAISE [None]
  - RENAL IMPAIRMENT [None]
